FAERS Safety Report 6896633-3 (Version None)
Quarter: 2010Q3

REPORT INFORMATION
  Report Type: 
  Country: None (occurrence: None)
  Receive Date: 20100802
  Receipt Date: 20070111
  Transmission Date: 20110219
  Serious: No
  Sender: FDA-Public Use
  Company Number: US-PFIZER INC-2006108794

PATIENT
  Sex: Female
  Weight: 63.5 kg

DRUGS (6)
  1. LYRICA [Suspect]
     Indication: NEUROPATHY PERIPHERAL
     Route: 048
     Dates: start: 20060101
  2. LYRICA [Suspect]
     Indication: NEURALGIA
  3. LAXATIVES [Concomitant]
  4. PERCOCET [Concomitant]
     Indication: PAIN
  5. KLONOPIN [Concomitant]
  6. MAPROTILINE [Concomitant]

REACTIONS (1)
  - DRUG EFFECT DECREASED [None]
